FAERS Safety Report 8693726 (Version 3)
Quarter: 2012Q4

REPORT INFORMATION
  Report Type: 
  Country: CA (occurrence: CA)
  Receive Date: 20120731
  Receipt Date: 20120903
  Transmission Date: 20130627
  Serious: Yes (Other)
  Sender: FDA-Public Use
  Company Number: CA-AMGEN-CANSP2012046875

PATIENT
  Age: 65 Year
  Sex: Female

DRUGS (6)
  1. ENBREL [Suspect]
     Indication: RHEUMATOID ARTHRITIS
     Dosage: 50 mg, qwk
     Route: 058
     Dates: start: 201203
  2. CLONAZEPAM [Concomitant]
     Indication: ANXIETY
     Dosage: 0.5 UNK, qd
     Route: 048
  3. METHOTREXATE [Concomitant]
     Indication: RHEUMATOID ARTHRITIS
     Dosage: 10 mg, qwk
     Route: 048
     Dates: start: 2009
  4. RAMIPRIL [Concomitant]
     Indication: HYPERTENSION
     Dosage: 5 mg, qd
     Route: 048
  5. PRISTIQ [Concomitant]
     Indication: DEPRESSION
     Dosage: 50 mg, qd
     Route: 048
  6. INDAPAMIDE [Concomitant]
     Indication: HYPERTENSION
     Dosage: 2.5 mg, qd
     Route: 048

REACTIONS (1)
  - Lacunar infarction [Recovered/Resolved]
